FAERS Safety Report 6949729-1 (Version None)
Quarter: 2010Q3

REPORT INFORMATION
  Report Type: 
  Country: None (occurrence: None)
  Receive Date: 20100828
  Receipt Date: 20100108
  Transmission Date: 20110219
  Serious: No
  Sender: FDA-Public Use
  Company Number: US-ABBOTT-10P-163-0618905-00

PATIENT
  Sex: Male
  Weight: 99.88 kg

DRUGS (2)
  1. NIASPAN [Suspect]
     Indication: PRODUCT USED FOR UNKNOWN INDICATION
     Dates: start: 20091101, end: 20091201
  2. NIASPAN [Suspect]
     Dates: start: 20091201

REACTIONS (1)
  - EAR DISCOMFORT [None]
